FAERS Safety Report 15626391 (Version 1)
Quarter: 2018Q4

REPORT INFORMATION
  Report Type: Spontaneous
  Country: IN (occurrence: IN)
  Receive Date: 20181116
  Receipt Date: 20181116
  Transmission Date: 20190205
  Serious: Yes (Death, Hospitalization)
  Sender: FDA-Public Use
  Company Number: IN-MYLANLABS-2018M1085857

PATIENT
  Age: 20 Year
  Sex: Male

DRUGS (2)
  1. LEUCOVORIN                         /00566701/ [Concomitant]
     Active Substance: LEUCOVORIN
     Indication: PROPHYLAXIS
     Dosage: 2 DOSES
     Route: 065
  2. METHOTREXATE. [Suspect]
     Active Substance: METHOTREXATE
     Indication: ACUTE LYMPHOCYTIC LEUKAEMIA
     Dosage: HIGH-DOSE; 5 G/M2
     Route: 065

REACTIONS (5)
  - Pancytopenia [Unknown]
  - Renal failure [Fatal]
  - Toxic epidermal necrolysis [Fatal]
  - Hepatic function abnormal [Fatal]
  - Toxicity to various agents [Fatal]
